FAERS Safety Report 8887793 (Version 1)
Quarter: 2012Q4

REPORT INFORMATION
  Report Type: Spontaneous
  Country: US (occurrence: None)
  Receive Date: 20121101
  Receipt Date: 20121101
  Transmission Date: 20130627
  Serious: Yes (Hospitalization)
  Sender: FDA-Public Use
  Company Number: None

PATIENT
  Age: 30 Year
  Sex: Female
  Weight: 101.2 kg

DRUGS (3)
  1. CARBOPLATIN [Suspect]
     Indication: ENDOMETRIAL CANCER
     Dosage: 175mg/m2 / AUC
     Dates: start: 20120806, end: 20121008
  2. RIDAFOROLIMUS [Suspect]
     Indication: ENDOMETRIAL CANCER
     Dosage: 20 mg po day 1-5 and 8-12
     Route: 048
     Dates: start: 20120807, end: 20121019
  3. PACLITAXEL [Suspect]
     Indication: ENDOMETRIAL CANCER
     Dosage: AUC 5 q21days
     Dates: start: 20120806, end: 20121008

REACTIONS (2)
  - Pancytopenia [None]
  - Pyrexia [None]
